FAERS Safety Report 5068058-7 (Version None)
Quarter: 2006Q3

REPORT INFORMATION
  Report Type: 
  Country: None (occurrence: None)
  Receive Date: 20060717
  Receipt Date: 20060117
  Transmission Date: 20061208
  Serious: Yes (Death, Hospitalization)
  Sender: FDA-Public Use
  Company Number: 2006000146

PATIENT
  Age: 48 Year
  Sex: Female

DRUGS (2)
  1. TARCEVA [Suspect]
     Indication: NEOPLASM MALIGNANT
     Dosage: ORAL
     Route: 048
  2. FLUCONAZOLE [Concomitant]

REACTIONS (9)
  - COUGH [None]
  - GASTROINTESTINAL TUBE INSERTION [None]
  - LARYNGEAL STENOSIS [None]
  - MALIGNANT NEOPLASM PROGRESSION [None]
  - NASOPHARYNGITIS [None]
  - PNEUMONIA [None]
  - STOMATITIS [None]
  - VIRAL INFECTION [None]
  - WEIGHT DECREASED [None]
